FAERS Safety Report 18927441 (Version 1)
Quarter: 2021Q1

REPORT INFORMATION
  Report Type: Spontaneous
  Country: US (occurrence: US)
  Receive Date: 20210223
  Receipt Date: 20210223
  Transmission Date: 20210420
  Serious: No
  Sender: FDA-Public Use
  Company Number: US-BIOVITRUM-2021US1786

PATIENT
  Sex: Female
  Weight: 6.8 kg

DRUGS (5)
  1. SYNAGIS [Suspect]
     Active Substance: PALIVIZUMAB
     Indication: ATRIOVENTRICULAR SEPTAL DEFECT
  2. SYNAGIS [Suspect]
     Active Substance: PALIVIZUMAB
     Indication: CONGENITAL AORTIC VALVE INCOMPETENCE
  3. EPANED [Concomitant]
     Active Substance: ENALAPRIL MALEATE
  4. SYNAGIS [Suspect]
     Active Substance: PALIVIZUMAB
     Indication: PREMATURE BABY
  5. SYNAGIS [Suspect]
     Active Substance: PALIVIZUMAB
     Indication: TRISOMY 21
     Route: 030
     Dates: start: 202011

REACTIONS (1)
  - Injection site reaction [Unknown]
